FAERS Safety Report 14899580 (Version 2)
Quarter: 2020Q2

REPORT INFORMATION
  Report Type: Spontaneous
  Country: US (occurrence: US)
  Receive Date: 20180516
  Receipt Date: 20200505
  Transmission Date: 20200713
  Serious: Yes (Other)
  Sender: FDA-Public Use
  Company Number: US-BRISTOL-MYERS SQUIBB COMPANY-BMS-2018-043123

PATIENT
  Sex: Female
  Weight: 80.72 kg

DRUGS (4)
  1. VICTOZA [Concomitant]
     Active Substance: LIRAGLUTIDE
     Indication: DIABETES MELLITUS
     Route: 065
  2. ELIQUIS [Suspect]
     Active Substance: APIXABAN
     Indication: SINUS NODE DYSFUNCTION
     Dosage: 5 MG, BID
     Route: 048
     Dates: start: 201411, end: 201805
  3. IRON [Concomitant]
     Active Substance: IRON
     Indication: PRODUCT USED FOR UNKNOWN INDICATION
     Route: 065
  4. METFORMIN [Concomitant]
     Active Substance: METFORMIN HYDROCHLORIDE
     Indication: DIABETES MELLITUS
     Route: 065

REACTIONS (15)
  - Anaemia [Unknown]
  - Abdominal pain upper [Unknown]
  - Occult blood negative [Unknown]
  - Pain in extremity [Unknown]
  - Headache [Unknown]
  - Vomiting [Unknown]
  - Upper gastrointestinal haemorrhage [Unknown]
  - Burning sensation [Unknown]
  - Dyspnoea [Unknown]
  - Bladder disorder [Unknown]
  - Dizziness [Unknown]
  - Arthralgia [Unknown]
  - Chest pain [Unknown]
  - Intentional product use issue [Unknown]
  - Myocardial infarction [Unknown]
